FAERS Safety Report 6510199-9 (Version None)
Quarter: 2009Q4

REPORT INFORMATION
  Report Type: 
  Country: None (occurrence: None)
  Receive Date: 20091222
  Receipt Date: 20091216
  Transmission Date: 20100525
  Serious: Yes (Death, Hospitalization)
  Sender: FDA-Public Use
  Company Number: CH-WYE-H12703309

PATIENT
  Age: 97 Year
  Sex: Female
  Weight: 45 kg

DRUGS (9)
  1. PANTOPRAZOLE [Suspect]
     Route: 048
  2. NORVASC [Suspect]
     Indication: ESSENTIAL HYPERTENSION
     Route: 048
  3. TORSEMIDE [Suspect]
     Indication: MYOCARDIAL ISCHAEMIA
     Route: 048
  4. TRANSIPEG [Concomitant]
     Dosage: UNKNOWN
     Route: 048
  5. DAFALGAN [Suspect]
     Route: 048
  6. BELOC ZOK [Concomitant]
     Indication: ESSENTIAL HYPERTENSION
     Route: 048
  7. LEKOVIT CA [Concomitant]
     Dosage: UNKNOWN
     Route: 048
  8. DOXIUM [Suspect]
     Route: 048
     Dates: start: 20090116, end: 20090320
  9. ACETYLSALICYLIC ACID [Suspect]
     Route: 048

REACTIONS (4)
  - ANAEMIA [None]
  - FEMORAL HERNIA [None]
  - INFECTION [None]
  - LEUKOPENIA [None]
